FAERS Safety Report 17038926 (Version 1)
Quarter: 2019Q4

REPORT INFORMATION
  Report Type: Spontaneous
  Country: JP (occurrence: JP)
  Receive Date: 20191115
  Receipt Date: 20191115
  Transmission Date: 20200122
  Serious: Yes (Life-Threatening, Hospitalization, Other)
  Sender: FDA-Public Use
  Company Number: JP-BRISTOL-MYERS SQUIBB COMPANY-BMS-2019-085279

PATIENT
  Age: 77 Year
  Sex: Male
  Weight: 43 kg

DRUGS (1)
  1. OPDIVO [Suspect]
     Active Substance: NIVOLUMAB
     Indication: GASTRIC CANCER
     Dosage: 240 MILLIGRAM, Q2WK
     Route: 041
     Dates: start: 20190823, end: 20190823

REACTIONS (9)
  - Melaena [Unknown]
  - Hypoaesthesia [Unknown]
  - Tubulointerstitial nephritis [Unknown]
  - Ligament sprain [Unknown]
  - Bone pain [Unknown]
  - Blood creatinine increased [Recovering/Resolving]
  - Pneumonia streptococcal [Unknown]
  - Eczema [Unknown]
  - Fall [Unknown]

NARRATIVE: CASE EVENT DATE: 20190823
